FAERS Safety Report 13313112 (Version 1)
Quarter: 2017Q1

REPORT INFORMATION
  Report Type: Spontaneous
  Country: PL (occurrence: PL)
  Receive Date: 20170309
  Receipt Date: 20170309
  Transmission Date: 20170428
  Serious: Yes (Life-Threatening)
  Sender: FDA-Public Use
  Company Number: PL-B.I. PHARMACEUTICALS,INC./RIDGEFIELD-2017-BI-013182

PATIENT
  Age: 72 Year
  Sex: Male
  Weight: 80 kg

DRUGS (5)
  1. PRESTARIUM [Concomitant]
     Active Substance: PERINDOPRIL
     Indication: CORONARY ARTERY DISEASE
     Route: 065
  2. BIBLOC [Concomitant]
     Indication: CORONARY ARTERY DISEASE
     Route: 065
  3. ATORIS [Concomitant]
     Active Substance: ATORVASTATIN CALCIUM
     Indication: CORONARY ARTERY DISEASE
     Route: 065
  4. NONPRES [Concomitant]
     Indication: CORONARY ARTERY DISEASE
     Route: 065
  5. PRADAXA [Suspect]
     Active Substance: DABIGATRAN ETEXILATE MESYLATE
     Indication: ATRIAL FIBRILLATION
     Route: 048
     Dates: end: 20170302

REACTIONS (1)
  - Cardiac tamponade [Recovering/Resolving]

NARRATIVE: CASE EVENT DATE: 20170302
